FAERS Safety Report 7269743-9 (Version None)
Quarter: 2011Q1

REPORT INFORMATION
  Report Type: 
  Country: None (occurrence: None)
  Receive Date: 20110202
  Receipt Date: 20110128
  Transmission Date: 20110831
  Serious: Yes (Hospitalization, Other)
  Sender: FDA-Public Use
  Company Number: US-PFIZER INC-2010150835

PATIENT
  Sex: Female

DRUGS (1)
  1. CHANTIX [Suspect]
     Indication: SMOKING CESSATION THERAPY
     Dosage: 0.5/1MG
     Dates: start: 20070301, end: 20070901

REACTIONS (10)
  - SUICIDE ATTEMPT [None]
  - BIPOLAR DISORDER [None]
  - MOOD SWINGS [None]
  - INSOMNIA [None]
  - INTENTIONAL OVERDOSE [None]
  - AGGRESSION [None]
  - AGITATION [None]
  - ANXIETY [None]
  - IRRITABILITY [None]
  - DEPRESSION [None]
